FAERS Safety Report 9013937 (Version 1)
Quarter: 2012Q4

REPORT INFORMATION
  Report Type: Spontaneous
  Country: US (occurrence: None)
  Receive Date: 20121231
  Receipt Date: 20121231
  Transmission Date: 20130627
  Serious: Yes (Death)
  Sender: FDA-Public Use
  Company Number: UTC-027167

PATIENT
  Age: 69 Year
  Sex: Female
  Weight: 52.27 kg

DRUGS (3)
  1. TYVASO (6 MICROGRAM, AEROSOL FOR INHALATION) (TREPROSTINIL SODIUM) [Suspect]
     Indication: CHRONIC PULMONARY HEART DISEASE
     Dates: start: 20101210
  2. ADCIRCA =(TADALAFIL) [Concomitant]
  3. LETAIRIS (AMBRISENTAN) [Concomitant]

REACTIONS (1)
  - Death [None]
